FAERS Safety Report 8447286-4 (Version None)
Quarter: 2012Q2

REPORT INFORMATION
  Report Type: 
  Country: None (occurrence: None)
  Receive Date: 20120619
  Receipt Date: 20120612
  Transmission Date: 20120825
  Serious: Yes (Other)
  Sender: FDA-Public Use
  Company Number: PHHY2012MX039403

PATIENT
  Sex: Female

DRUGS (5)
  1. OMEPRAZOLE [Concomitant]
     Dosage: 1 DF, UNK
  2. FORADIL [Suspect]
     Indication: ASTHMA
     Dosage: 2 DF, DAILY
     Dates: start: 20120501
  3. SUCRALFATE [Concomitant]
  4. BUDESONIDE [Concomitant]
     Indication: ASTHMA
     Dosage: 200 MG, QD
  5. BUDESONIDE [Concomitant]
     Dosage: 400 MG, QD

REACTIONS (6)
  - CONDITION AGGRAVATED [None]
  - INCREASED UPPER AIRWAY SECRETION [None]
  - PRODUCTIVE COUGH [None]
  - MALAISE [None]
  - OXYGEN SATURATION DECREASED [None]
  - DYSPNOEA [None]
